FAERS Safety Report 6171170-2 (Version None)
Quarter: 2009Q2

REPORT INFORMATION
  Report Type: 
  Country: None (occurrence: None)
  Receive Date: 20090429
  Receipt Date: 20090421
  Transmission Date: 20091009
  Serious: No
  Sender: FDA-Public Use
  Company Number: DE-ELI_LILLY_AND_COMPANY-DE200904004410

PATIENT
  Sex: Female

DRUGS (2)
  1. CYMBALTA [Suspect]
     Indication: DEPRESSION
     Dosage: 60 MG, DAILY (1/D)
     Route: 048
     Dates: start: 20090413
  2. PROMETAZIN [Concomitant]
     Dosage: UNK, UNKNOWN
     Route: 065

REACTIONS (12)
  - ABDOMINAL PAIN UPPER [None]
  - CHILLS [None]
  - DIARRHOEA [None]
  - DIZZINESS [None]
  - EAR PAIN [None]
  - HALLUCINATION [None]
  - HYPERHIDROSIS [None]
  - MICTURITION URGENCY [None]
  - PRURITUS [None]
  - RESTLESSNESS [None]
  - VISION BLURRED [None]
  - YELLOW SKIN [None]
